FAERS Safety Report 12397802 (Version 1)
Quarter: 2016Q2

REPORT INFORMATION
  Report Type: Spontaneous
  Country: US (occurrence: None)
  Receive Date: 20160523
  Receipt Date: 20160523
  Transmission Date: 20160815
  Serious: Yes (Hospitalization)
  Sender: FDA-Public Use
  Company Number: None

PATIENT
  Age: 64 Year
  Sex: Female

DRUGS (16)
  1. TACROLIMUS. [Suspect]
     Active Substance: TACROLIMUS
     Indication: PROPHYLAXIS AGAINST GRAFT VERSUS HOST DISEASE
     Route: 048
     Dates: start: 20160306, end: 20160316
  2. HYDRALAZINE [Concomitant]
     Active Substance: HYDRALAZINE HYDROCHLORIDE
  3. ACYCLOVIR. [Concomitant]
     Active Substance: ACYCLOVIR
  4. CASPOFUNGIN [Concomitant]
     Active Substance: CASPOFUNGIN
  5. LIDOCAINE VISCOUS [Concomitant]
     Active Substance: LIDOCAINE HYDROCHLORIDE
  6. NYSTATIN. [Concomitant]
     Active Substance: NYSTATIN
  7. LOPERAMIDE [Concomitant]
     Active Substance: LOPERAMIDE
  8. FILGRASTIM [Concomitant]
     Active Substance: FILGRASTIM
  9. ORAL LIQUID [Concomitant]
  10. CEFEPIME [Concomitant]
     Active Substance: CEFEPIME HYDROCHLORIDE
  11. LORAZAPAM [Concomitant]
     Active Substance: LORAZEPAM
  12. LORATADINE. [Concomitant]
     Active Substance: LORATADINE
  13. VANCOMYCIN [Concomitant]
     Active Substance: VANCOMYCIN
  14. TEMAZEPAM. [Concomitant]
     Active Substance: TEMAZEPAM
  15. URSODIAL [Concomitant]
  16. VORICONAZOLE. [Concomitant]
     Active Substance: VORICONAZOLE

REACTIONS (3)
  - Hypertension [None]
  - Stem cell transplant [None]
  - Immunosuppressant drug level increased [None]

NARRATIVE: CASE EVENT DATE: 20160314
